FAERS Safety Report 16354374 (Version 2)
Quarter: 2019Q4

REPORT INFORMATION
  Report Type: Spontaneous
  Country: IT (occurrence: IT)
  Receive Date: 20190524
  Receipt Date: 20191201
  Transmission Date: 20200122
  Serious: Yes (Hospitalization)
  Sender: FDA-Public Use
  Company Number: PHHY2019IT119279

PATIENT
  Age: 56 Year
  Sex: Male

DRUGS (3)
  1. VOLTFAST (DICLOFENAC POTASSIUM) [Suspect]
     Active Substance: DICLOFENAC POTASSIUM
     Indication: PAIN
     Dosage: 150 MG, UNK
     Route: 048
     Dates: start: 20190303, end: 20190303
  2. ESOPRAL (ESOMEPRAZOLE) [Suspect]
     Active Substance: ESOMEPRAZOLE
     Indication: DUODENAL ULCER
     Dosage: 480 MG, UNK
     Route: 048
     Dates: start: 20190303, end: 20190303
  3. ANAURAN [LIDOCAINE\NEOMYCIN\POLYMYXIN B] [Suspect]
     Active Substance: LIDOCAINE\NEOMYCIN\POLYMYXIN B
     Indication: EAR INFECTION
     Dosage: 100 ML, UNK
     Route: 048
     Dates: start: 20190303, end: 20190303

REACTIONS (5)
  - Sopor [Recovered/Resolved]
  - Suicide attempt [Recovered/Resolved]
  - Drug abuse [Recovered/Resolved]
  - Metabolic acidosis [Recovered/Resolved]
  - Carboxyhaemoglobinaemia [Recovered/Resolved]

NARRATIVE: CASE EVENT DATE: 20190303
